FAERS Safety Report 18059173 (Version 1)
Quarter: 2020Q3

REPORT INFORMATION
  Report Type: Spontaneous
  Country: US (occurrence: US)
  Receive Date: 20200723
  Receipt Date: 20200723
  Transmission Date: 20201103
  Serious: Yes (Hospitalization)
  Sender: FDA-Public Use
  Company Number: None

PATIENT
  Sex: Male
  Weight: 60.32 kg

DRUGS (2)
  1. LEUPROLIDE ACETATE. [Suspect]
     Active Substance: LEUPROLIDE ACETATE
  2. BICALUTAMIDE. [Concomitant]
     Active Substance: BICALUTAMIDE

REACTIONS (6)
  - Chest pain [None]
  - Arterial occlusive disease [None]
  - Dyspnoea [None]
  - Electrocardiogram ST segment elevation [None]
  - Troponin increased [None]
  - Nausea [None]

NARRATIVE: CASE EVENT DATE: 20191228
